FAERS Safety Report 5369383-2 (Version None)
Quarter: 2007Q2

REPORT INFORMATION
  Report Type: 
  Country: None (occurrence: None)
  Receive Date: 20070625
  Receipt Date: 20070413
  Transmission Date: 20071010
  Serious: No
  Sender: FDA-Public Use
  Company Number: US-ASTRAZENECA-2007UW07306

PATIENT
  Age: 64 Year
  Sex: Female
  Weight: 88.5 kg

DRUGS (4)
  1. CRESTOR [Suspect]
     Indication: BLOOD CHOLESTEROL INCREASED
     Route: 048
     Dates: start: 20061101
  2. TARKA [Concomitant]
  3. NEXIUM [Concomitant]
  4. LEVOXYL [Concomitant]

REACTIONS (3)
  - ANXIETY [None]
  - LIMB DISCOMFORT [None]
  - MUSCLE TIGHTNESS [None]
